FAERS Safety Report 16662382 (Version 1)
Quarter: 2019Q3

REPORT INFORMATION
  Report Type: Report from Study
  Country: US (occurrence: US)
  Receive Date: 20190802
  Receipt Date: 20190802
  Transmission Date: 20191004
  Serious: No
  Sender: FDA-Public Use
  Company Number: US-EXELIXIS-CABO-19019233

PATIENT
  Sex: Female

DRUGS (2)
  1. CABOMETYX [Suspect]
     Active Substance: CABOZANTINIB S-MALATE
     Indication: HEPATIC CANCER
     Dosage: 40 MG, AM-W/O FOOD
     Dates: start: 20190218, end: 20190318
  2. CABOMETYX [Suspect]
     Active Substance: CABOZANTINIB S-MALATE
     Dosage: 20 MG, QD
     Dates: start: 20190419, end: 20190421

REACTIONS (9)
  - Pruritus [Unknown]
  - Fatigue [Unknown]
  - Inflammation [Recovering/Resolving]
  - Diarrhoea [Recovered/Resolved]
  - Vomiting [Recovered/Resolved]
  - Stomatitis [Recovering/Resolving]
  - Furuncle [Unknown]
  - Autoimmune disorder [Unknown]
  - Yellow skin [Recovering/Resolving]
